FAERS Safety Report 8472300-X (Version None)
Quarter: 2012Q2

REPORT INFORMATION
  Report Type: 
  Country: None (occurrence: None)
  Receive Date: 20120323
  Receipt Date: 20110915
  Transmission Date: 20120825
  Serious: Yes (Other)
  Sender: FDA-Public Use
  Company Number: 163-21880-11082545

PATIENT
  Age: 79 Year
  Sex: Male
  Weight: 78.9259 kg

DRUGS (10)
  1. VASOTEC [Concomitant]
  2. ARADIA (PAMIDRONATE DISODIUM) [Concomitant]
  3. COMPAZINE [Concomitant]
  4. REVLIMID [Suspect]
     Indication: MULTIPLE MYELOMA
     Dosage: 10;5 MG, 1 IN 1 D, PO
     Route: 048
     Dates: start: 20110901
  5. REVLIMID [Suspect]
     Indication: MULTIPLE MYELOMA
     Dosage: 10;5 MG, 1 IN 1 D, PO
     Route: 048
     Dates: start: 20110727, end: 20110914
  6. AMBIEN [Concomitant]
  7. PLAVIX [Concomitant]
  8. CELEBREX [Concomitant]
  9. COREG [Concomitant]
  10. LASIX [Concomitant]

REACTIONS (1)
  - PANCYTOPENIA [None]
